FAERS Safety Report 8329518-6 (Version None)
Quarter: 2012Q2

REPORT INFORMATION
  Report Type: 
  Country: None (occurrence: None)
  Receive Date: 20120430
  Receipt Date: 20120419
  Transmission Date: 20120825
  Serious: Yes (Hospitalization)
  Sender: FDA-Public Use
  Company Number: 7126964

PATIENT
  Age: 94 Year
  Sex: Female

DRUGS (1)
  1. LEVOTHYROXINE SODIUM [Suspect]
     Indication: AUTOIMMUNE THYROIDITIS
     Dosage: 1 DF (1 DF, 1 IN 1 D),ORAL
     Route: 048
     Dates: start: 20111201

REACTIONS (3)
  - TACHYARRHYTHMIA [None]
  - ASTHENIA [None]
  - HYPERTHYROIDISM [None]
